FAERS Safety Report 12798854 (Version 1)
Quarter: 2016Q3

REPORT INFORMATION
  Report Type: Report from Study
  Country: US (occurrence: US)
  Receive Date: 20160930
  Receipt Date: 20160930
  Transmission Date: 20161109
  Serious: Yes (Hospitalization)
  Sender: FDA-Public Use
  Company Number: US-BAYER-2016-164627

PATIENT
  Age: 62 Year
  Sex: Female
  Weight: 46.71 kg

DRUGS (12)
  1. AZITHROMYCIN ANHYDROUS. [Concomitant]
     Active Substance: AZITHROMYCIN ANHYDROUS
  2. STIVARGA [Suspect]
     Active Substance: REGORAFENIB
     Indication: MALIGNANT PERITONEAL NEOPLASM
     Dosage: 80 MG DAILY DOSE
     Route: 048
     Dates: start: 20160821, end: 20160826
  3. ADVIL [IBUPROFEN] [Concomitant]
     Active Substance: IBUPROFEN
  4. TYLENOL [Concomitant]
     Active Substance: ACETAMINOPHEN
  5. ETHAMBUTOL DIHYDROCHLORIDE [Concomitant]
     Active Substance: ETHAMBUTOL HYDROCHLORIDE
  6. DRONABINOL. [Concomitant]
     Active Substance: DRONABINOL
  7. ONDANSETRON [Concomitant]
     Active Substance: ONDANSETRON
  8. RIFAMPIN. [Concomitant]
     Active Substance: RIFAMPIN
  9. OXYCODONE [Concomitant]
     Active Substance: OXYCODONE
  10. AMLODIPINE [Concomitant]
     Active Substance: AMLODIPINE BESYLATE
  11. STIVARGA [Suspect]
     Active Substance: REGORAFENIB
     Indication: MALIGNANT PERITONEAL NEOPLASM
     Dosage: 80 MG, QD
     Route: 048
     Dates: start: 20160821, end: 20160826
  12. HYDROCHLOROTHIAZIDE. [Concomitant]
     Active Substance: HYDROCHLOROTHIAZIDE

REACTIONS (4)
  - Dyspnoea [Recovered/Resolved]
  - Off label use [None]
  - Pancreatitis [Recovered/Resolved]
  - Dysphonia [Unknown]

NARRATIVE: CASE EVENT DATE: 20160822
